FAERS Safety Report 22638402 (Version 2)
Quarter: 2024Q3

REPORT INFORMATION
  Report Type: Report from Study
  Country: US (occurrence: US)
  Receive Date: 20230626
  Receipt Date: 20240712
  Transmission Date: 20241017
  Serious: No
  Sender: SANOFI AVENTIS
  Company Number: US-SA-SAC20230620001421

PATIENT
  Age: 65 Year
  Sex: Female
  Weight: 54.4 kg

DRUGS (7)
  1. DUPIXENT [Suspect]
     Active Substance: DUPILUMAB
     Indication: Dermatitis atopic
     Dosage: 300MG; QOW
     Route: 058
     Dates: start: 20220224, end: 202402
  2. DUPIXENT [Suspect]
     Active Substance: DUPILUMAB
     Dosage: UNK
     Dates: start: 2024
  3. PROLIA [Suspect]
     Active Substance: DENOSUMAB
     Dosage: UNK
  4. HERBALS\WITHANIA SOMNIFERA ROOT [Concomitant]
     Active Substance: HERBALS\WITHANIA SOMNIFERA ROOT
     Dosage: UNK
  5. COLLAGENASE [Concomitant]
     Active Substance: COLLAGENASE CLOSTRIDIUM HISTOLYTICUM
     Dosage: UNK
  6. CALCIUM [Concomitant]
     Active Substance: CALCIUM
     Dosage: UNK
  7. FISH OIL\TOCOPHEROL [Concomitant]
     Active Substance: FISH OIL\TOCOPHEROL
     Dosage: UNK

REACTIONS (5)
  - Pain of skin [Not Recovered/Not Resolved]
  - Arthralgia [Recovered/Resolved]
  - Dermatitis atopic [Not Recovered/Not Resolved]
  - Therapeutic response decreased [Unknown]
  - Therapeutic response unexpected [Unknown]
